FAERS Safety Report 21206429 (Version 1)
Quarter: 2022Q3

REPORT INFORMATION
  Report Type: Spontaneous
  Country: NL (occurrence: NL)
  Receive Date: 20220812
  Receipt Date: 20220812
  Transmission Date: 20221026
  Serious: Yes (Hospitalization, Disabling)
  Sender: FDA-Public Use
  Company Number: None

PATIENT
  Age: 52 Year
  Sex: Female
  Weight: 70 kg

DRUGS (10)
  1. KEYTRUDA [Suspect]
     Active Substance: PEMBROLIZUMAB
     Indication: Non-small cell lung cancer metastatic
     Dosage: 200 MILLIGRAM, EVERY 3 WEEKS
     Dates: start: 20190425, end: 20210204
  2. VITAMIN D3 [Concomitant]
     Active Substance: CHOLECALCIFEROL
     Dosage: CAPSULE, 5600 UNITS
  3. HYDROXOCOBALAMIN [Concomitant]
     Active Substance: HYDROXOCOBALAMIN
     Dosage: LIQUID FOR INJECTION, 500 ?G/ML (MICROGRAM PER MILLILITER)
  4. FOLIC ACID [Concomitant]
     Active Substance: FOLIC ACID
     Dosage: TABLET, 0.5 MG (MILLIGRAM)
  5. ALENDRONIC ACID [Concomitant]
     Active Substance: ALENDRONIC ACID
     Dosage: TABLET, 70 MG (MILLIGRAM)
  6. TEMAZEPAM [Concomitant]
     Active Substance: TEMAZEPAM
     Dosage: TABLET, 10 MG (MILLIGRAM)
  7. ACETAMINOPHEN [Concomitant]
     Active Substance: ACETAMINOPHEN
     Dosage: TABLET, 500 MG (MILLIGRAM)
  8. DEXAMETHASONE [Concomitant]
     Active Substance: DEXAMETHASONE
     Dosage: 2 MILLIGRAM (MG)
  9. PANTOPRAZOL A [Concomitant]
     Dosage: STOMACH ACID RESISTANT TABLET, 40 MG (MILLIGRAM)
  10. PEMETREXED [Concomitant]
     Active Substance: PEMETREXED
     Dosage: 940 MG/3 WEEKS

REACTIONS (2)
  - Deafness bilateral [Not Recovered/Not Resolved]
  - Encephalitis [Unknown]

NARRATIVE: CASE EVENT DATE: 20210201
